FAERS Safety Report 9391963 (Version 2)
Quarter: 2013Q3

REPORT INFORMATION
  Report Type: Spontaneous
  Country: US (occurrence: US)
  Receive Date: 20130709
  Receipt Date: 20130724
  Transmission Date: 20140515
  Serious: Yes (Other)
  Sender: FDA-Public Use
  Company Number: US-PFIZER INC-2013200251

PATIENT
  Age: 51 Year
  Sex: Female
  Weight: 72.56 kg

DRUGS (2)
  1. ZOLOFT [Suspect]
     Indication: DEPRESSION
     Dosage: 50 MG, 1X/DAY
     Route: 048
     Dates: start: 20130226, end: 20130227
  2. DILAUDID [Concomitant]
     Dosage: UNK

REACTIONS (3)
  - Bladder cancer [Unknown]
  - Hypersensitivity [Recovered/Resolved]
  - Nausea [Recovered/Resolved]
